FAERS Safety Report 5973521-8 (Version None)
Quarter: 2008Q4

REPORT INFORMATION
  Report Type: 
  Country: None (occurrence: None)
  Receive Date: 20081201
  Receipt Date: 20081119
  Transmission Date: 20090506
  Serious: Yes (Life-Threatening, Hospitalization)
  Sender: FDA-Public Use
  Company Number: FR-AVENTIS-200813798FR

PATIENT
  Age: 50 Year
  Sex: Female

DRUGS (1)
  1. TAXOTERE [Suspect]
     Route: 042
     Dates: start: 20080808, end: 20080829

REACTIONS (3)
  - CHOLECYSTITIS [None]
  - ENTEROCOLITIS [None]
  - LARGE INTESTINE PERFORATION [None]
